FAERS Safety Report 8009987-1 (Version None)
Quarter: 2011Q4

REPORT INFORMATION
  Report Type: 
  Country: None (occurrence: None)
  Receive Date: 20111221
  Receipt Date: 20111213
  Transmission Date: 20120403
  Serious: Yes (Hospitalization)
  Sender: FDA-Public Use
  Company Number: AUR-APL-2010-02611

PATIENT
  Age: 66 Year
  Sex: Female

DRUGS (6)
  1. SIMVASTATIN [Concomitant]
  2. ZOPICLONE (ZOPICLONE) [Concomitant]
  3. CITALOPRAM HYDROBROMIDE [Suspect]
     Indication: DEPRESSION
     Dosage: 20 MG (20 MG, 1 IN 1 D), ORAL
     Route: 048
     Dates: end: 20100722
  4. STEMETIL (PROCHLORPERAZINE) [Concomitant]
  5. CLOZARIL [Suspect]
     Indication: SCHIZOPHRENIA
     Dosage: 400 MG
     Dates: start: 20091002, end: 20101129
  6. ISMO [Concomitant]

REACTIONS (8)
  - LOSS OF CONSCIOUSNESS [None]
  - HAEMATEMESIS [None]
  - FALL [None]
  - DIZZINESS [None]
  - URINARY TRACT INFECTION [None]
  - GASTROINTESTINAL ULCER [None]
  - OESOPHAGITIS ULCERATIVE [None]
  - UPPER GASTROINTESTINAL HAEMORRHAGE [None]
